FAERS Safety Report 15991531 (Version 1)
Quarter: 2019Q1

REPORT INFORMATION
  Report Type: Report from Study
  Country: US (occurrence: US)
  Receive Date: 20190221
  Receipt Date: 20190221
  Transmission Date: 20190418
  Serious: Yes (Other)
  Sender: FDA-Public Use
  Company Number: US-PFIZER INC-2019069733

PATIENT
  Age: 10 Year
  Sex: Male
  Weight: 30.6 kg

DRUGS (7)
  1. METHOTREXATE SODIUM. [Concomitant]
     Active Substance: METHOTREXATE SODIUM
     Dosage: 3000 MG/M2, CYCLIC, OVER 3 HOURS ON DAY 1
     Route: 042
     Dates: start: 20181226, end: 20181226
  2. CYCLOPHOSPHAMIDE. [Concomitant]
     Active Substance: CYCLOPHOSPHAMIDE
     Dosage: TOTAL DOSE ADMINISTERED THIS COURSE 648 MG
     Route: 042
     Dates: start: 20181229, end: 20181230
  3. IFOSFAMIDE. [Concomitant]
     Active Substance: IFOSFAMIDE
     Dosage: 800 MG/M2, CYCLIC, OVER 60 MIN ON DAYS 1-5
     Route: 042
     Dates: start: 20181226, end: 20181230
  4. CYTARABINE. [Concomitant]
     Active Substance: CYTARABINE
     Dosage: 150 MG/M2, CYCLIC, OVER 1-30 MINUTES Q12 HOURS ON DAYS 4 AND 5 (TOTAL 4 DOSES)
     Route: 042
     Dates: start: 20181229, end: 20181230
  5. DEXAMETHASONE. [Concomitant]
     Active Substance: DEXAMETHASONE
     Dosage: 5 MG/M2, CYCLIC, BID ON DAYS 1-5
     Route: 048
     Dates: start: 20181226, end: 20181230
  6. CRIZOTINIB [Suspect]
     Active Substance: CRIZOTINIB
     Dosage: 165 MG/M2, CYCLIC, BID ON DAYS 1-21
     Route: 048
     Dates: start: 20181129, end: 20190114
  7. VP-16 [Concomitant]
     Active Substance: ETOPOSIDE
     Dosage: 100 MG/M2, CYCLIC, OVER 2 HOURS ON DAYS 4 AND 5
     Route: 042
     Dates: start: 20181229, end: 20181230

REACTIONS (1)
  - Embolism [Not Recovered/Not Resolved]

NARRATIVE: CASE EVENT DATE: 20190114
